FAERS Safety Report 20474713 (Version 7)
Quarter: 2022Q2

REPORT INFORMATION
  Report Type: Report from Study
  Country: FR (occurrence: FR)
  Receive Date: 20220215
  Receipt Date: 20220531
  Transmission Date: 20220721
  Serious: Yes (Death, Hospitalization, Other)
  Sender: FDA-Public Use
  Company Number: FR-GILEAD-2021-0558759

PATIENT
  Sex: Female
  Weight: 67 kg

DRUGS (6)
  1. SACITUZUMAB GOVITECAN [Suspect]
     Active Substance: SACITUZUMAB GOVITECAN
     Indication: Triple negative breast cancer
     Dosage: 7.5 MG/KG, DAY 1
     Route: 042
     Dates: start: 20211110
  2. SACITUZUMAB GOVITECAN [Suspect]
     Active Substance: SACITUZUMAB GOVITECAN
     Dosage: 7.5 MG/KG, DAY 8
     Route: 042
     Dates: start: 20211208
  3. SACITUZUMAB GOVITECAN [Suspect]
     Active Substance: SACITUZUMAB GOVITECAN
     Dosage: 7.5 MG/KG, DAY 1 CCL 2
     Route: 042
     Dates: start: 20211221
  4. SACITUZUMAB GOVITECAN [Suspect]
     Active Substance: SACITUZUMAB GOVITECAN
     Dosage: 7.5 MG/KG, DAY 8 CCL 3
     Route: 042
     Dates: start: 20211121, end: 20220118
  5. FENTANYL [Concomitant]
     Active Substance: FENTANYL
  6. PREGABALIN [Concomitant]
     Active Substance: PREGABALIN

REACTIONS (17)
  - Death [Fatal]
  - Anaemia [Recovered/Resolved]
  - Disease progression [Fatal]
  - Anaemia [Recovered/Resolved]
  - Anaemia [Unknown]
  - Diarrhoea [Recovered/Resolved]
  - Thrombocytopenia [Recovered/Resolved]
  - Infection [Recovered/Resolved]
  - Sepsis [Unknown]
  - Thrombocytopenia [Recovered/Resolved]
  - Hypokalaemia [Unknown]
  - Neutropenia [Unknown]
  - Productive cough [Recovered/Resolved]
  - Dysgeusia [Recovered/Resolved]
  - Decreased appetite [Not Recovered/Not Resolved]
  - Constipation [Recovered/Resolved]
  - Off label use [Unknown]

NARRATIVE: CASE EVENT DATE: 20211118
